FAERS Safety Report 5725224-2 (Version None)
Quarter: 2008Q2

REPORT INFORMATION
  Report Type: 
  Country: None (occurrence: None)
  Receive Date: 20080501
  Receipt Date: 20080430
  Transmission Date: 20081010
  Serious: Yes (Life-Threatening)
  Sender: FDA-Public Use
  Company Number: B0518815A

PATIENT
  Age: 41 Year
  Sex: Female

DRUGS (1)
  1. AUGMENTIN '125' [Suspect]
     Indication: INFLUENZA
     Dosage: 2G PER DAY
     Route: 048
     Dates: start: 20080327, end: 20080328

REACTIONS (3)
  - ANGIOEDEMA [None]
  - DYSPNOEA [None]
  - URTICARIA [None]
